FAERS Safety Report 22333904 (Version 1)
Quarter: 2023Q2

REPORT INFORMATION
  Report Type: Spontaneous
  Country: US (occurrence: US)
  Receive Date: 20230517
  Receipt Date: 20230517
  Transmission Date: 20230721
  Serious: No
  Sender: FDA-Public Use
  Company Number: US-AIMMUNE THERAPEUTICS, INC.-2023AIMT00060

PATIENT

DRUGS (4)
  1. PALFORZIA [Suspect]
     Active Substance: PEANUT
     Indication: Food allergy
     Dosage: IDE (0.5MG-6MG), ONCE
     Route: 048
     Dates: start: 20230116, end: 20230116
  2. PALFORZIA [Suspect]
     Active Substance: PEANUT
     Dosage: AT 3 MG AND 6 MG DURING THE IDE, ONCE, LAST DOSE PRIOR EVENT
     Route: 048
     Dates: start: 20230116, end: 20230116
  3. PALFORZIA [Suspect]
     Active Substance: PEANUT
     Dosage: 3 MG, 1X/DAY
     Route: 048
     Dates: start: 20230117, end: 20230129
  4. PALFORZIA [Suspect]
     Active Substance: PEANUT
     Dosage: 3 MG, ONCE, LAST DOSE PRIOR THE RECURRENCE OF THE EVENT
     Route: 048
     Dates: start: 202301, end: 202301

REACTIONS (1)
  - Abdominal pain [Recovered/Resolved]

NARRATIVE: CASE EVENT DATE: 20230116
